FAERS Safety Report 10916369 (Version 2)
Quarter: 2015Q3

REPORT INFORMATION
  Report Type: Spontaneous
  Country: US (occurrence: US)
  Receive Date: 20150316
  Receipt Date: 20150724
  Transmission Date: 20151125
  Serious: Yes (Other)
  Sender: FDA-Public Use
  Company Number: US-TEVA-547169USA

PATIENT
  Sex: Male

DRUGS (1)
  1. COPAXONE [Suspect]
     Active Substance: GLATIRAMER ACETATE
     Indication: MULTIPLE SCLEROSIS
     Dosage: DOSE AND FREQUENCY NOT PROVIDED
     Route: 065
     Dates: start: 2013

REACTIONS (2)
  - Multiple sclerosis relapse [Unknown]
  - Progressive multiple sclerosis [Unknown]
